FAERS Safety Report 25736620 (Version 1)
Quarter: 2025Q3

REPORT INFORMATION
  Report Type: Spontaneous
  Country: EU (occurrence: EU)
  Receive Date: 20250828
  Receipt Date: 20250828
  Transmission Date: 20251020
  Serious: Yes (Other)
  Sender: NOVARTIS
  Company Number: EU-BIOVITRUM-2025-DE-010846

PATIENT
  Age: 59 Year
  Sex: Male

DRUGS (20)
  1. CYCLOSPORINE [Suspect]
     Active Substance: CYCLOSPORINE
     Indication: VEXAS syndrome
     Route: 065
  2. CYCLOSPORINE [Suspect]
     Active Substance: CYCLOSPORINE
     Indication: Still^s disease
     Dosage: 75 MG, BID
     Route: 065
  3. CANAKINUMAB [Suspect]
     Active Substance: CANAKINUMAB
     Indication: VEXAS syndrome
     Dosage: 150 MG, QMO 30 MONTHS
     Route: 065
  4. CANAKINUMAB [Suspect]
     Active Substance: CANAKINUMAB
     Indication: Still^s disease
  5. ADALIMUMAB [Suspect]
     Active Substance: ADALIMUMAB
     Indication: VEXAS syndrome
     Dosage: 40 MG, BIW (FOR 2 MONTHS)
     Route: 065
  6. ADALIMUMAB [Suspect]
     Active Substance: ADALIMUMAB
     Indication: Still^s disease
  7. METHOTREXATE [Suspect]
     Active Substance: METHOTREXATE
     Indication: Still^s disease
     Dosage: 15 MG, QW (FOR 8 MONTHS)
     Route: 058
  8. METHOTREXATE [Suspect]
     Active Substance: METHOTREXATE
     Indication: VEXAS syndrome
     Dosage: 10 MG, QD (FOR 6 MONTHS)
     Route: 048
  9. ANAKINRA [Suspect]
     Active Substance: ANAKINRA
     Indication: VEXAS syndrome
     Dosage: 100 MG, QD 1 MONTH (SYRINGE)
     Route: 065
  10. ANAKINRA [Suspect]
     Active Substance: ANAKINRA
     Indication: Still^s disease
     Dosage: 100 MG, QD 1 MONTH
     Route: 065
  11. AZATHIOPRINE [Suspect]
     Active Substance: AZATHIOPRINE
     Indication: Antiinflammatory therapy
     Route: 065
  12. AZATHIOPRINE [Suspect]
     Active Substance: AZATHIOPRINE
     Indication: Still^s disease
     Dosage: 75 MILLIGRAM, BID (FOR 1 MONTH)
     Route: 065
  13. COLCHICINE [Suspect]
     Active Substance: COLCHICINE
     Indication: VEXAS syndrome
     Route: 065
  14. COLCHICINE [Suspect]
     Active Substance: COLCHICINE
     Indication: Still^s disease
     Dosage: 0.5 MILLIGRAM, BID
     Route: 065
  15. TOCILIZUMAB [Suspect]
     Active Substance: TOCILIZUMAB
     Indication: VEXAS syndrome
     Dosage: 162 MG, QW 2 MONTHS
     Route: 065
  16. TOCILIZUMAB [Suspect]
     Active Substance: TOCILIZUMAB
     Indication: Still^s disease
     Route: 065
  17. UPADACITINIB [Suspect]
     Active Substance: UPADACITINIB
     Indication: VEXAS syndrome
     Dosage: 15 MG, QD 1 MONTH
     Route: 065
  18. UPADACITINIB [Suspect]
     Active Substance: UPADACITINIB
     Indication: Still^s disease
     Dosage: 15 MILLIGRAM, QD
     Route: 065
  19. TOFACITINIB [Suspect]
     Active Substance: TOFACITINIB
     Indication: VEXAS syndrome
     Route: 065
  20. TOFACITINIB [Suspect]
     Active Substance: TOFACITINIB
     Indication: Still^s disease
     Dosage: 5 MILLIGRAM, BID
     Route: 065

REACTIONS (13)
  - Myelodysplastic syndrome [Unknown]
  - Cytokine release syndrome [Unknown]
  - Febrile neutropenia [Unknown]
  - Acute kidney injury [Unknown]
  - Adrenal insufficiency [Unknown]
  - Atrial fibrillation [Unknown]
  - Meningitis listeria [Unknown]
  - VEXAS syndrome [Recovered/Resolved]
  - Infection [Unknown]
  - Adverse drug reaction [Unknown]
  - Drug ineffective for unapproved indication [Unknown]
  - Off label use [Unknown]
  - Off label use [Recovered/Resolved]

NARRATIVE: CASE EVENT DATE: 20220201
